FAERS Safety Report 5513040-6 (Version None)
Quarter: 2007Q4

REPORT INFORMATION
  Report Type: 
  Country: None (occurrence: None)
  Receive Date: 20071112
  Receipt Date: 20070824
  Transmission Date: 20080405
  Serious: No
  Sender: FDA-Public Use
  Company Number: US-ABBOTT-07P-163-0415296-00

PATIENT
  Sex: Female
  Weight: 60.836 kg

DRUGS (4)
  1. TRICOR [Suspect]
     Indication: BLOOD CHOLESTEROL INCREASED
     Route: 048
     Dates: start: 20070401, end: 20070601
  2. TRICOR [Suspect]
     Indication: BLOOD TRIGLYCERIDES
  3. GABAPENTIN [Concomitant]
     Indication: NEURALGIA
     Route: 048
  4. ZOLPIDEM TARTRATE [Concomitant]
     Indication: POOR QUALITY SLEEP
     Route: 048

REACTIONS (4)
  - ABDOMINAL DISTENSION [None]
  - ALOPECIA [None]
  - CONSTIPATION [None]
  - DYSPEPSIA [None]
